FAERS Safety Report 6464727-2 (Version None)
Quarter: 2009Q4

REPORT INFORMATION
  Report Type: 
  Country: None (occurrence: None)
  Receive Date: 20091201
  Receipt Date: 20091119
  Transmission Date: 20100525
  Serious: Yes (Hospitalization, Other)
  Sender: FDA-Public Use
  Company Number: US-ELI_LILLY_AND_COMPANY-US200911001206

PATIENT
  Sex: Female

DRUGS (10)
  1. FORTEO [Suspect]
     Dosage: 20 UG, DAILY (1/D)
     Dates: start: 20091012
  2. POTASSIUM CHLORIDE [Concomitant]
     Dosage: 10 MEQ, DAILY (1/D)
     Dates: start: 20091001
  3. TOPROL-XL                          /00376903/ [Concomitant]
     Dosage: 25 MG, DAILY (1/D)
     Dates: start: 20091001
  4. LASIX [Concomitant]
     Dosage: 20 MG, DAILY (1/D)
  5. ASPIRIN [Concomitant]
     Dosage: 81 MG, DAILY (1/D)
  6. ASPIRIN [Concomitant]
     Dosage: 325 MG, DAILY (1/D)
  7. OSCAL D /01746701/ [Concomitant]
     Dates: start: 20091001
  8. DRONEDARONE [Concomitant]
     Dosage: 400 MG, 2/D
  9. MOBIC [Concomitant]
     Dates: end: 20091001
  10. LIDODERM [Concomitant]
     Indication: BACK PAIN

REACTIONS (5)
  - BLOOD CALCIUM INCREASED [None]
  - CARDIAC FAILURE CONGESTIVE [None]
  - DYSPNOEA [None]
  - LUNG DISORDER [None]
  - URINARY TRACT INFECTION [None]
